FAERS Safety Report 20475918 (Version 2)
Quarter: 2022Q2

REPORT INFORMATION
  Report Type: Report from Study
  Country: US (occurrence: US)
  Receive Date: 20220215
  Receipt Date: 20220516
  Transmission Date: 20220721
  Serious: Yes (Other)
  Sender: FDA-Public Use
  Company Number: US-TAKEDA-2022TUS006540

PATIENT
  Sex: Female

DRUGS (2)
  1. PONATINIB [Suspect]
     Active Substance: PONATINIB
     Indication: Acute lymphocytic leukaemia recurrent
     Dosage: 30 MILLIGRAM, QD
     Route: 048
  2. PONATINIB [Suspect]
     Active Substance: PONATINIB
     Dosage: 45 MILLIGRAM, QD
     Route: 048

REACTIONS (6)
  - Acute lymphocytic leukaemia [Unknown]
  - Fatigue [Unknown]
  - Tremor [Unknown]
  - Muscle spasms [Unknown]
  - Headache [Unknown]
  - Full blood count decreased [Unknown]
